FAERS Safety Report 9959537 (Version 1)
Quarter: 2014Q1

REPORT INFORMATION
  Report Type: Spontaneous
  Country: US (occurrence: None)
  Receive Date: 20140228
  Receipt Date: 20140228
  Transmission Date: 20141002
  Serious: Yes (Other)
  Sender: FDA-Public Use
  Company Number: 2014-US-001946

PATIENT
  Age: 58 Year
  Sex: Female
  Weight: 86.2 kg

DRUGS (17)
  1. XYREM (SODIUM OXYBATE) ORAL SOLUTION, 500 MG/ML [Suspect]
     Indication: NARCOLEPSY
     Route: 048
     Dates: start: 200912
  2. ACTOS (PIOGLITAZONE HYDROCHLORIDE) [Concomitant]
  3. CLARINEX (DESLORATADINE) [Concomitant]
  4. FUROSEMIDE (FUROSEMIDE) [Concomitant]
  5. HYDROXYCHLOROQUINE (HYDROXYCHLORORQUINE) [Concomitant]
  6. MELOXICAM (MELOXICAM) [Concomitant]
  7. PRILOSEC (OMEPRAZOLE MEGNESIUM) [Concomitant]
  8. LEVOTHYROXINE (LEVOTHYROXINE SODIUM) [Concomitant]
  9. ADDERALL (AMFETAMINE ASPARTATE, AMFETAMINE SULFATE, DEXAMFETAMINE SULFATE) [Concomitant]
  10. HOZIANT (GABAPENTIN ENACARBIL) [Concomitant]
  11. LIVALO (PITAVASTATIN CALCIUM) [Concomitant]
  12. PAROXETINE (PAROXETINE HYDROCHLORIDE) [Concomitant]
  13. VITAMIN D (ERGOCALCIFEROL) [Concomitant]
  14. IRON (IRON) [Concomitant]
  15. DOCUSATE CALCIUM (DOCUSATE CALCIUM) [Concomitant]
  16. PROVENTIL (SALBUTAMOL SULFATE) [Concomitant]
  17. FLOVENT (FLUTICASONE PROPIONATE) [Concomitant]

REACTIONS (3)
  - Diabetes mellitus [None]
  - Blood glucose increased [None]
  - Glycosylated haemoglobin increased [None]
